FAERS Safety Report 16930277 (Version 1)
Quarter: 2019Q4

REPORT INFORMATION
  Report Type: Spontaneous
  Country: GB (occurrence: GB)
  Receive Date: 20191017
  Receipt Date: 20191017
  Transmission Date: 20200122
  Serious: Yes (Hospitalization)
  Sender: FDA-Public Use
  Company Number: GB-MYLANLABS-2019M1097319

PATIENT
  Age: 72 Year
  Sex: Female

DRUGS (14)
  1. OMEPRAZOLE. [Concomitant]
     Active Substance: OMEPRAZOLE
     Dosage: 20 MILLIGRAM, QD
  2. EVACAL D3 [Concomitant]
     Dosage: MORNING + NIGHT
  3. CYCLIZINE [Concomitant]
     Active Substance: CYCLIZINE
     Dosage: ONE TO BE TAKEN UP TO THREE TIMES A DAY
  4. EXEMESTANE. [Concomitant]
     Active Substance: EXEMESTANE
     Dosage: IN THE MORNING
  5. ALENDRONATE [Suspect]
     Active Substance: ALENDRONATE SODIUM
     Indication: PRODUCT USED FOR UNKNOWN INDICATION
     Dosage: 70 MILLIGRAM, QW
  6. MIRTAZAPINE. [Concomitant]
     Active Substance: MIRTAZAPINE
     Dosage: AT NIGHT
  7. FERROUS FUMARATE [Concomitant]
     Active Substance: FERROUS FUMARATE
     Dosage: 610 MILLIGRAM, QD
  8. LOPERAMIDE [Concomitant]
     Active Substance: LOPERAMIDE
     Dosage: THREE/FOUR TIMES A DAY
  9. CARBAMAZEPINE. [Concomitant]
     Active Substance: CARBAMAZEPINE
     Dosage: 400MG+100MG
  10. PHENYTOIN SODIUM. [Concomitant]
     Active Substance: PHENYTOIN SODIUM
     Dosage: AFTER MEALS
  11. LAMOTRIGINE. [Concomitant]
     Active Substance: LAMOTRIGINE
     Dosage: MORNING + NIGHT
  12. PARACETAMOL [Concomitant]
     Active Substance: ACETAMINOPHEN
     Dosage: FOUR TIMES A DAY
  13. ENOXAPARIN [Concomitant]
     Active Substance: ENOXAPARIN
     Dosage: IN THE MORNING
     Route: 058
  14. PREGABALIN. [Concomitant]
     Active Substance: PREGABALIN
     Dosage: 300 MILLIGRAM, QD

REACTIONS (3)
  - Stomatitis [Unknown]
  - Abscess [Unknown]
  - Osteonecrosis of jaw [Unknown]
